FAERS Safety Report 9042110 (Version 1)
Quarter: 2013Q1

REPORT INFORMATION
  Report Type: Report from Study
  Country: US (occurrence: US)
  Receive Date: 20130129
  Receipt Date: 20130129
  Transmission Date: 20140127
  Serious: No
  Sender: FDA-Public Use
  Company Number: US-ABBOTT-12P-163-0906645-00

PATIENT
  Age: 32 Year
  Sex: Female

DRUGS (8)
  1. HUMIRA 40 MG/0.8 ML PEN [Suspect]
     Indication: PSORIASIS
     Dates: start: 20111116
  2. OXYCONTIN [Concomitant]
     Indication: INTERVERTEBRAL DISC DEGENERATION
  3. OXYCONTIN [Concomitant]
     Indication: ARTHRALGIA
  4. MELOXICAM [Concomitant]
     Indication: ARTHRALGIA
  5. MELOXICAM [Concomitant]
     Indication: BACK PAIN
  6. OXYCODONE [Concomitant]
     Indication: ARTHRALGIA
     Dosage: 3-5 DAILY AS NEEDED
  7. OXYCODONE [Concomitant]
     Indication: BACK PAIN
  8. CITALOPRAM [Concomitant]
     Indication: DEPRESSION
     Dosage: DAILY

REACTIONS (1)
  - Food poisoning [Recovered/Resolved]
